FAERS Safety Report 17882088 (Version 1)
Quarter: 2020Q2

REPORT INFORMATION
  Report Type: Spontaneous
  Country: CA (occurrence: CA)
  Receive Date: 20200610
  Receipt Date: 20200610
  Transmission Date: 20200714
  Serious: Yes (Death)
  Sender: FDA-Public Use
  Company Number: NVSC2020CA161648

PATIENT
  Age: 55 Year
  Sex: Male
  Weight: 114 kg

DRUGS (7)
  1. HEPARIN [Concomitant]
     Active Substance: HEPARIN SODIUM
     Indication: DEEP VEIN THROMBOSIS
     Dosage: UNK
     Route: 065
  2. RIVAROXABAN [Concomitant]
     Active Substance: RIVAROXABAN
     Indication: DEEP VEIN THROMBOSIS
     Dosage: UNK
     Route: 065
  3. HEPARINE SODIUM [Concomitant]
     Active Substance: HEPARIN SODIUM
     Indication: PERIPHERAL ARTERY BYPASS
     Dosage: UNK
     Route: 065
  4. ALTEPLASE. [Concomitant]
     Active Substance: ALTEPLASE
     Indication: CARDIAC ARREST
     Dosage: UNK
     Route: 065
  5. ARGATROBAN. [Suspect]
     Active Substance: ARGATROBAN
     Indication: HEPARIN-INDUCED THROMBOCYTOPENIA
     Dosage: UNK
     Route: 065
  6. ACETYLSALICYLIC ACID [Concomitant]
     Active Substance: ASPIRIN
     Indication: PERIPHERAL ARTERY BYPASS
     Dosage: UNK
     Route: 065
  7. EPINEPHRINE HYDROCHLORIDE. [Concomitant]
     Active Substance: EPINEPHRINE HYDROCHLORIDE
     Indication: CARDIAC ARREST
     Dosage: UNK
     Route: 065

REACTIONS (1)
  - General physical health deterioration [Fatal]
